FAERS Safety Report 9701334 (Version 1)
Quarter: 2013Q4

REPORT INFORMATION
  Report Type: Spontaneous
  Country: US (occurrence: US)
  Receive Date: 20131121
  Receipt Date: 20131121
  Transmission Date: 20140711
  Serious: No
  Sender: FDA-Public Use
  Company Number: US-GILEAD-2008-0016623

PATIENT
  Sex: Female

DRUGS (10)
  1. LETAIRIS [Suspect]
     Route: 048
     Dates: start: 20080205
  2. LOTREL 10/20 [Concomitant]
     Route: 048
  3. GUANFACINE [Concomitant]
     Route: 048
  4. HYDRALAZINE [Concomitant]
     Route: 048
  5. ATENOLOL [Concomitant]
     Route: 048
  6. SPIRONOLACTONE [Concomitant]
     Route: 048
  7. LASIX [Concomitant]
     Route: 048
  8. METOLAZONE [Concomitant]
     Route: 048
  9. FESO4 [Concomitant]
     Route: 048
  10. KLOR-CON [Concomitant]
     Route: 048

REACTIONS (2)
  - Nasal congestion [Not Recovered/Not Resolved]
  - Local swelling [Unknown]
